FAERS Safety Report 5630621-X (Version None)
Quarter: 2008Q1

REPORT INFORMATION
  Report Type: 
  Country: None (occurrence: None)
  Receive Date: 20080219
  Receipt Date: 20080208
  Transmission Date: 20080703
  Serious: Yes (Death)
  Sender: FDA-Public Use
  Company Number: US-ROCHE-542231

PATIENT
  Age: 55 Year
  Sex: Male
  Weight: 52.2 kg

DRUGS (1)
  1. CAPECITABINE [Suspect]
     Indication: COLON CANCER STAGE IV
     Route: 048
     Dates: start: 20070923, end: 20071109

REACTIONS (1)
  - COLON CANCER [None]
